FAERS Safety Report 24915110 (Version 1)
Quarter: 2025Q1

REPORT INFORMATION
  Report Type: Other
  Country: JP (occurrence: JP)
  Receive Date: 20250203
  Receipt Date: 20250203
  Transmission Date: 20250409
  Serious: Yes (Death)
  Sender: ANI
  Company Number: JP-ANIPHARMA-015496

PATIENT
  Age: 4 Year
  Sex: Male

DRUGS (4)
  1. TEMOZOLOMIDE [Suspect]
     Active Substance: TEMOZOLOMIDE
     Indication: Neuroblastoma
     Route: 048
  2. ETOPOSIDE [Concomitant]
     Active Substance: ETOPOSIDE
     Indication: Neuroblastoma
     Route: 048
  3. ISOTRETINOIN [Concomitant]
     Active Substance: ISOTRETINOIN
     Indication: Neuroblastoma
  4. CELECOXIB [Concomitant]
     Active Substance: CELECOXIB
     Indication: Neuroblastoma

REACTIONS (1)
  - Drug ineffective [Fatal]
